FAERS Safety Report 7610259-5 (Version None)
Quarter: 2011Q3

REPORT INFORMATION
  Report Type: 
  Country: None (occurrence: None)
  Receive Date: 20110713
  Receipt Date: 20110713
  Transmission Date: 20111222
  Serious: Yes (Other)
  Sender: FDA-Public Use
  Company Number: None

PATIENT
  Sex: Female
  Weight: 63.5036 kg

DRUGS (2)
  1. BRIMONIDINE TARTRATE [Concomitant]
  2. DORZOLAMIDE 22%/TIMOLOL 0.5% [Suspect]
     Indication: GLAUCOMA
     Dosage: 1 GTT 08 Q 12H
     Dates: start: 20090101, end: 20090401

REACTIONS (2)
  - VISION BLURRED [None]
  - PRODUCT SUBSTITUTION ISSUE [None]
